APPROVED DRUG PRODUCT: DAPSONE
Active Ingredient: DAPSONE
Strength: 5%
Dosage Form/Route: GEL;TOPICAL
Application: A218457 | Product #001 | TE Code: AB
Applicant: AUROBINDO PHARMA LTD
Approved: Apr 4, 2025 | RLD: No | RS: No | Type: RX